FAERS Safety Report 9796360 (Version 1)
Quarter: 2014Q1

REPORT INFORMATION
  Report Type: Spontaneous
  Country: IT (occurrence: IT)
  Receive Date: 20140103
  Receipt Date: 20140103
  Transmission Date: 20141002
  Serious: Yes (Hospitalization)
  Sender: FDA-Public Use
  Company Number: IT-PFIZER INC-2014000444

PATIENT
  Age: 82 Year
  Sex: Female

DRUGS (7)
  1. TAVOR [Suspect]
     Indication: DEPRESSION
     Dosage: 2.5 MG, TOTAL
     Route: 048
  2. ADESITRIN [Suspect]
     Indication: HYPERTENSION
     Dosage: 15 MG, TOTAL
     Route: 062
  3. EN [Interacting]
     Indication: DEPRESSION
     Dosage: 15 GTT, TOTAL
     Route: 048
  4. NEULEPTIL [Suspect]
     Indication: PSYCHOTIC DISORDER
     Dosage: 10 GTT, TOTAL
     Route: 048
  5. VALDORM [Suspect]
     Indication: DEPRESSION
     Dosage: 15 MG, TOTAL
     Route: 048
  6. VASORETIC [Suspect]
     Indication: HYPERTENSION
     Dosage: 32.5 MG, TOTAL
     Route: 048
  7. SOLUCIS [Suspect]
     Indication: COUGH
     Route: 048

REACTIONS (2)
  - Coma [Recovered/Resolved with Sequelae]
  - Drug interaction [Recovered/Resolved with Sequelae]
